FAERS Safety Report 15308136 (Version 1)
Quarter: 2018Q3

REPORT INFORMATION
  Report Type: Other
  Country: US (occurrence: US)
  Receive Date: 20180822
  Receipt Date: 20180822
  Transmission Date: 20181010
  Serious: No
  Sender: FDA-Public Use
  Company Number: US-LANNETT COMPANY, INC.-US-2018LAN000504

PATIENT
  Sex: Male

DRUGS (1)
  1. METHYLPHENIDATE HYDROCHLORIDE. [Suspect]
     Active Substance: METHYLPHENIDATE HYDROCHLORIDE
     Indication: ATTENTION DEFICIT/HYPERACTIVITY DISORDER
     Dosage: 36 MG, QD, IN THE MORNING
     Route: 048
     Dates: start: 201709, end: 201710

REACTIONS (6)
  - Drug ineffective [Unknown]
  - Disturbance in attention [Recovering/Resolving]
  - Panic attack [Recovering/Resolving]
  - Abnormal behaviour [Recovering/Resolving]
  - Feeling abnormal [Recovering/Resolving]
  - Aggression [Recovering/Resolving]

NARRATIVE: CASE EVENT DATE: 2017
